FAERS Safety Report 4279598-2 (Version None)
Quarter: 2004Q1

REPORT INFORMATION
  Report Type: 
  Country: None (occurrence: None)
  Receive Date: 20040123
  Receipt Date: 20031212
  Transmission Date: 20041129
  Serious: No
  Sender: FDA-Public Use
  Company Number: RB-357-2003

PATIENT
  Age: 30 Year

DRUGS (1)
  1. BUPRENORPHINE HYDROCHLORIDE [Suspect]
     Indication: DRUG DEPENDENCE
     Dosage: IV
     Route: 042

REACTIONS (6)
  - CHORIORETINAL DISORDER [None]
  - FOLLICULITIS [None]
  - INTENTIONAL MISUSE [None]
  - RASH PUSTULAR [None]
  - VISUAL ACUITY REDUCED [None]
  - VITRITIS [None]
